FAERS Safety Report 8823110 (Version 2)
Quarter: 2013Q1

REPORT INFORMATION
  Report Type: Spontaneous
  Country: US (occurrence: US)
  Receive Date: 20121003
  Receipt Date: 20130212
  Transmission Date: 20140127
  Serious: Yes (Death)
  Sender: FDA-Public Use
  Company Number: US-ROCHE-1135708

PATIENT
  Sex: Male

DRUGS (4)
  1. RITUXAN [Suspect]
     Indication: LYMPHOMA
     Route: 065
     Dates: start: 19980325
  2. RITUXAN [Suspect]
     Indication: NON-HODGKIN^S LYMPHOMA
     Route: 065
     Dates: start: 19980401
  3. RITUXAN [Suspect]
     Indication: OFF LABEL USE
     Route: 065
     Dates: start: 19980408
  4. RITUXAN [Suspect]
     Route: 065
     Dates: start: 19980415

REACTIONS (1)
  - Death [Fatal]
